FAERS Safety Report 23304685 (Version 5)
Quarter: 2024Q1

REPORT INFORMATION
  Report Type: Report from Study
  Country: CA (occurrence: CA)
  Receive Date: 20231218
  Receipt Date: 20240326
  Transmission Date: 20240410
  Serious: Yes (Hospitalization)
  Sender: FDA-Public Use
  Company Number: CA-002147023-NVSC2021CA084316

PATIENT
  Age: 37 Year
  Sex: Male

DRUGS (2)
  1. MAYZENT [Suspect]
     Active Substance: SIPONIMOD
     Indication: Secondary progressive multiple sclerosis
     Dosage: UNK
     Route: 048
     Dates: start: 20201023, end: 20230816
  2. MAYZENT [Suspect]
     Active Substance: SIPONIMOD
     Dosage: 2 MG, QD
     Route: 048
     Dates: start: 20230908, end: 20231207

REACTIONS (6)
  - Constipation [Recovering/Resolving]
  - Sepsis [Recovering/Resolving]
  - Product dose omission issue [Unknown]
  - Peripheral swelling [Not Recovered/Not Resolved]
  - Pharyngitis [Not Recovered/Not Resolved]
  - Immune system disorder [Unknown]

NARRATIVE: CASE EVENT DATE: 20210301
